FAERS Safety Report 5117549-9 (Version None)
Quarter: 2006Q3

REPORT INFORMATION
  Report Type: 
  Country: None (occurrence: None)
  Receive Date: 20060926
  Receipt Date: 20060905
  Transmission Date: 20061208
  Serious: Yes (Hospitalization)
  Sender: FDA-Public Use
  Company Number: US200609001176

PATIENT
  Age: 81 Year
  Sex: Female
  Weight: 81.6 kg

DRUGS (17)
  1. FORTEO [Suspect]
     Indication: BONE DISORDER
     Dates: start: 20060530
  2. EVISTA [Suspect]
     Indication: BONE DISORDER
     Dosage: BONE DISORDER
     Dates: start: 20020101
  3. FORETO PEN (FORTEO PEN ) PEN, DISPOSABLE [Concomitant]
  4. LASIX  /SCH/ (FUROSESMIDE, FUROSEMIDE SODIUM) [Concomitant]
  5. SPIRONOLACTONE [Concomitant]
  6. K-DUR 10 [Concomitant]
  7. NEXIUM (ESOMPERAZOLE) [Concomitant]
  8. ALLEGRA [Concomitant]
  9. CALTRATE PLUS (CALCIUM, COLECALCIFEROL, COPPER, MAGNESIUM, MANGANESE, [Concomitant]
  10. CENTRUM SILVER (ASCORBIC ACID, CALCIUM, MINERALS NOS, RETINOL, TOCOPHE [Concomitant]
  11. DARVON [Concomitant]
  12. MECLIZINE [Concomitant]
  13. ALUMINUM HYDROXIDE AND MAGNESIUM TRISILICATE [Concomitant]
  14. URISED (ATROPINE SULFATE, BENZOIC ACID, GELSEMIUM, HYOSCYAINE, METHENA [Concomitant]
  15. ZETIA [Concomitant]
  16. TRICOR [Concomitant]
  17. FOLTX (CYANOCOBALAMIN, FOLIC ACID, PYRIDOXINE) [Concomitant]

REACTIONS (7)
  - ASPARTATE AMINOTRANSFERASE INCREASED [None]
  - BLOOD ALKALINE PHOSPHATASE INCREASED [None]
  - CYSTITIS [None]
  - GAMMA-GLUTAMYLTRANSFERASE INCREASED [None]
  - MYOCARDIAL INFARCTION [None]
  - PHARMACEUTICAL PRODUCT COMPLAINT [None]
  - SPINAL FRACTURE [None]
